FAERS Safety Report 4886080-8 (Version None)
Quarter: 2006Q1

REPORT INFORMATION
  Report Type: 
  Country: None (occurrence: None)
  Receive Date: 20060120
  Receipt Date: 20060113
  Transmission Date: 20060701
  Serious: Yes (Hospitalization)
  Sender: FDA-Public Use
  Company Number: US-AVENTIS-200610449US

PATIENT
  Sex: Female

DRUGS (9)
  1. ARAVA [Suspect]
     Dosage: DOSE: 20 (2 TABLETS IN 1 WEEK)
     Route: 048
  2. INFLIXIMAB [Suspect]
     Indication: RHEUMATOID ARTHRITIS
     Dosage: DOSE: 400 (1 IN 5 WEEKS)
     Route: 042
     Dates: start: 20030130
  3. NORVASC [Concomitant]
     Route: 048
  4. TOPROL-XL [Concomitant]
  5. LASIX [Concomitant]
     Dosage: DOSE: 20 PRN
  6. POTASSIUM [Concomitant]
  7. HYDROXYCHLOROQUINE SULFATE [Concomitant]
     Dosage: DOSE: 200 X 2
  8. PREDNISONE [Concomitant]
     Route: 048
  9. IRON [Concomitant]

REACTIONS (5)
  - BLOOD CREATININE INCREASED [None]
  - DIARRHOEA [None]
  - GASTROENTERITIS [None]
  - RENAL DISORDER [None]
  - RENAL FAILURE ACUTE [None]
